FAERS Safety Report 4754704-1 (Version None)
Quarter: 2005Q3

REPORT INFORMATION
  Report Type: 
  Country: None (occurrence: None)
  Receive Date: 20050829
  Receipt Date: 20050817
  Transmission Date: 20060218
  Serious: Yes (Death, Other)
  Sender: FDA-Public Use
  Company Number: JP-MERCK-0508USA03431

PATIENT
  Age: 47 Year
  Sex: Male
  Weight: 50 kg

DRUGS (9)
  1. PRIMAXIN [Suspect]
     Indication: PNEUMONIA PRIMARY ATYPICAL
     Route: 042
  2. PRIMAXIN [Suspect]
     Route: 042
  3. PRIMAXIN [Suspect]
     Indication: PNEUMONIA FUNGAL
     Route: 042
  4. PRIMAXIN [Suspect]
     Route: 042
  5. CIPROFLOXACIN HYDROCHLORIDE [Concomitant]
     Indication: PNEUMONIA PRIMARY ATYPICAL
     Route: 048
  6. CIPROFLOXACIN HYDROCHLORIDE [Concomitant]
     Indication: PNEUMONIA FUNGAL
     Route: 048
  7. MICAFUNGIN SODIUM [Concomitant]
     Indication: PNEUMONIA PRIMARY ATYPICAL
     Route: 042
  8. MICAFUNGIN SODIUM [Concomitant]
     Indication: PNEUMONIA FUNGAL
     Route: 042
  9. FOY [Concomitant]
     Indication: DISSEMINATED INTRAVASCULAR COAGULATION
     Route: 042

REACTIONS (6)
  - ALVEOLAR PROTEINOSIS [None]
  - DRUG INEFFECTIVE [None]
  - HYPERKALAEMIA [None]
  - JAUNDICE [None]
  - RENAL FAILURE ACUTE [None]
  - VENTRICULAR FIBRILLATION [None]
